FAERS Safety Report 6942516-X (Version None)
Quarter: 2010Q3

REPORT INFORMATION
  Report Type: 
  Country: None (occurrence: None)
  Receive Date: 20100826
  Receipt Date: 20100818
  Transmission Date: 20110219
  Serious: Yes (Hospitalization)
  Sender: FDA-Public Use
  Company Number: CR-ELI_LILLY_AND_COMPANY-CR201008006266

PATIENT
  Age: 46 Year
  Sex: Male

DRUGS (4)
  1. EXENATIDE [Suspect]
     Indication: DIABETES MELLITUS
     Dosage: 5 UG, 2/D
     Route: 065
     Dates: start: 20091101
  2. EXENATIDE [Suspect]
     Dosage: 5 UG, DAILY (1/D)
     Route: 065
  3. EXENATIDE [Suspect]
     Dosage: 5 UG, 2/D
     Route: 065
  4. EXENATIDE [Suspect]
     Dosage: 10 UG, UNKNOWN
     Route: 065

REACTIONS (2)
  - HEPATIC NEOPLASM MALIGNANT [None]
  - OFF LABEL USE [None]
